FAERS Safety Report 22080753 (Version 1)
Quarter: 2023Q1

REPORT INFORMATION
  Report Type: Spontaneous
  Country: US (occurrence: US)
  Receive Date: 20230309
  Receipt Date: 20230309
  Transmission Date: 20230417
  Serious: Yes (Hospitalization)
  Sender: FDA-Public Use
  Company Number: US-TEVA-2023-US-2862343

PATIENT
  Sex: Female

DRUGS (3)
  1. LORAZEPAM [Suspect]
     Active Substance: LORAZEPAM
     Indication: Catatonia
     Dosage: 3 MILLIGRAM DAILY; 1MG 3 TIMES/DAY
     Route: 065
  2. LORAZEPAM [Suspect]
     Active Substance: LORAZEPAM
     Dosage: LIQUID LORAZEPAM 1MG
     Route: 065
  3. LORAZEPAM [Suspect]
     Active Substance: LORAZEPAM
     Dosage: .75 MILLIGRAM DAILY; 0.25MG 3 TIMES/DAY
     Route: 065

REACTIONS (7)
  - Bradycardia [Unknown]
  - Somnolence [Unknown]
  - Hypotension [Unknown]
  - Hypokalaemia [Unknown]
  - Refeeding syndrome [Unknown]
  - Dehydration [Unknown]
  - Respiratory rate decreased [Recovered/Resolved]
